FAERS Safety Report 13408223 (Version 2)
Quarter: 2017Q2

REPORT INFORMATION
  Report Type: Report from Study
  Country: None (occurrence: FR)
  Receive Date: 20170406
  Receipt Date: 20170407
  Transmission Date: 20170830
  Serious: Yes (Other)
  Sender: FDA-Public Use
  Company Number: FR-ABBVIE-17K-056-1931254-00

PATIENT
  Age: 66 Year
  Sex: Female

DRUGS (1)
  1. HUMIRA [Suspect]
     Active Substance: ADALIMUMAB
     Indication: RHEUMATOID ARTHRITIS
     Route: 058

REACTIONS (10)
  - Dizziness [Unknown]
  - Pruritus [Unknown]
  - Alopecia [Unknown]
  - Peripheral swelling [Recovering/Resolving]
  - Device issue [Unknown]
  - Mucosal dryness [Unknown]
  - Dry skin [Unknown]
  - Incorrect dose administered [Unknown]
  - Cyst [Unknown]
  - Migraine [Unknown]
